FAERS Safety Report 12098517 (Version 1)
Quarter: 2016Q1

REPORT INFORMATION
  Report Type: Not Available
  Country: FR (occurrence: FR)
  Receive Date: 20160222
  Receipt Date: 20160222
  Transmission Date: 20160526
  Serious: Yes (Life-Threatening, Hospitalization)
  Sender: FDA-Public Use
  Company Number: FR-BEH-2016059028

PATIENT
  Age: 80 Year
  Sex: Male

DRUGS (8)
  1. APROVEL [Concomitant]
     Active Substance: IRBESARTAN
  2. PRIVIGEN [Suspect]
     Active Substance: HUMAN IMMUNOGLOBULIN G
     Indication: IMMUNE THROMBOCYTOPENIC PURPURA
     Dosage: DAILY DOSE: 100 G , 1
     Route: 042
     Dates: start: 20150213, end: 20150213
  3. SOTALOL (HYDROCHLORIDE) [Concomitant]
  4. ANTIHAEMORRHAGICS [Suspect]
     Active Substance: UNSPECIFIED INGREDIENT
     Indication: IMMUNE THROMBOCYTOPENIC PURPURA
     Dosage: START DATE: ??-JAN-2015
     Route: 058
     Dates: end: 20150218
  5. ANTIHAEMORRHAGICS [Suspect]
     Active Substance: UNSPECIFIED INGREDIENT
     Indication: IMMUNE THROMBOCYTOPENIC PURPURA
     Dosage: START DATE/DURATION: FOR YEARS
     Route: 048
     Dates: end: 20150218
  6. PRIVIGEN [Suspect]
     Active Substance: HUMAN IMMUNOGLOBULIN G
     Indication: THROMBOCYTOPENIA
     Dosage: DAILY DOSE: 100 G , 1
     Route: 042
     Dates: start: 20150213, end: 20150213
  7. LEVOTHYROX [Concomitant]
     Active Substance: LEVOTHYROXINE
  8. CORTANCYL [Concomitant]
     Active Substance: PREDNISONE
     Indication: IMMUNE THROMBOCYTOPENIC PURPURA

REACTIONS (4)
  - Platelet count increased [None]
  - Deep vein thrombosis [None]
  - Deep vein thrombosis [Recovered/Resolved]
  - Pulmonary embolism [Recovered/Resolved]

NARRATIVE: CASE EVENT DATE: 20150218
